FAERS Safety Report 23513381 (Version 1)
Quarter: 2024Q1

REPORT INFORMATION
  Report Type: Spontaneous
  Country: US (occurrence: US)
  Receive Date: 20240212
  Receipt Date: 20240212
  Transmission Date: 20240410
  Serious: Yes (Hospitalization, Other)
  Sender: FDA-Public Use
  Company Number: US-TARO PHARMACEUTICALS USA INC.-2024TAR00129

PATIENT

DRUGS (2)
  1. CHILDRENS CETIRIZINE HYDROCHLORIDE SUGAR FREE GRAPE [Suspect]
     Active Substance: CETIRIZINE HYDROCHLORIDE
     Indication: Hypersensitivity
     Dosage: UNK, AS DIRECTED ON PACKAGE,AS DIRECTED ON PACKAGE
     Route: 048
     Dates: start: 202311
  2. Albuterol and Duoneb [Concomitant]
     Indication: Product used for unknown indication
     Dosage: TAKE AS NEEDED
     Route: 065

REACTIONS (9)
  - Hypoxia [Recovering/Resolving]
  - Dyspnoea [Recovering/Resolving]
  - Asthma [Recovering/Resolving]
  - Fall [Recovering/Resolving]
  - Seasonal allergy [Recovering/Resolving]
  - Pain [Recovering/Resolving]
  - Inflammation [Recovering/Resolving]
  - Discomfort [Recovering/Resolving]
  - Hypersensitivity [Recovering/Resolving]
